FAERS Safety Report 5415265-7 (Version None)
Quarter: 2007Q3

REPORT INFORMATION
  Report Type: 
  Country: None (occurrence: None)
  Receive Date: 20070815
  Receipt Date: 20070809
  Transmission Date: 20080115
  Serious: Yes (Hospitalization)
  Sender: FDA-Public Use
  Company Number: FR-ELI_LILLY_AND_COMPANY-FR200708001879

PATIENT
  Age: 80 Year
  Sex: Female

DRUGS (5)
  1. FORTEO [Suspect]
     Indication: OSTEOPOROSIS
     Dosage: 20 UG, DAILY (1/D)
     Route: 058
     Dates: start: 20060424
  2. PREVISCAN [Concomitant]
  3. AMIODARONE HCL [Concomitant]
     Indication: CEREBROVASCULAR ACCIDENT
  4. HYPERIUM [Concomitant]
     Indication: HYPERTENSION
  5. TANGANIL [Concomitant]
     Indication: VERTIGO

REACTIONS (4)
  - DECREASED APPETITE [None]
  - EPISTAXIS [None]
  - JOINT DISLOCATION [None]
  - NAUSEA [None]
